FAERS Safety Report 4957468-1 (Version None)
Quarter: 2006Q1

REPORT INFORMATION
  Report Type: 
  Country: None (occurrence: None)
  Receive Date: 20060328
  Receipt Date: 20060328
  Transmission Date: 20060701
  Serious: Yes (Life-Threatening, Hospitalization, Other)
  Sender: FDA-Public Use
  Company Number: None

PATIENT
  Sex: Female
  Weight: 104.3273 kg

DRUGS (2)
  1. REMICADE [Suspect]
     Indication: RHEUMATOID ARTHRITIS
  2. REMICADE [Concomitant]

REACTIONS (13)
  - DECUBITUS ULCER [None]
  - DEEP VEIN THROMBOSIS [None]
  - DYSPNOEA [None]
  - IMMUNOSUPPRESSION [None]
  - INJECTION SITE REACTION [None]
  - LOSS OF CONSCIOUSNESS [None]
  - LOSS OF EMPLOYMENT [None]
  - LUNG DISORDER [None]
  - MALAISE [None]
  - OXYGEN SATURATION DECREASED [None]
  - PHARYNGOLARYNGEAL PAIN [None]
  - SEPSIS [None]
  - STAPHYLOCOCCAL INFECTION [None]
